FAERS Safety Report 7235846-8 (Version None)
Quarter: 2011Q1

REPORT INFORMATION
  Report Type: 
  Country: None (occurrence: None)
  Receive Date: 20110120
  Receipt Date: 20101210
  Transmission Date: 20110831
  Serious: Yes (Death, Other)
  Sender: FDA-Public Use
  Company Number: US-BAXTER-2010BH005746

PATIENT
  Age: 65 Year
  Sex: Male

DRUGS (1)
  1. HEPARIN SODIUM INJECTION [Suspect]
     Indication: CORONARY ARTERY BYPASS
     Route: 042
     Dates: start: 20080117, end: 20080118

REACTIONS (8)
  - CARDIOGENIC SHOCK [None]
  - RESPIRATORY FAILURE [None]
  - HYPOVOLAEMIC SHOCK [None]
  - POST PROCEDURAL DRAINAGE [None]
  - PULMONARY ARTERIAL PRESSURE INCREASED [None]
  - POST PROCEDURAL HAEMORRHAGE [None]
  - METABOLIC ACIDOSIS [None]
  - HYPOTENSION [None]
